APPROVED DRUG PRODUCT: DEXTROAMP SACCHARATE, AMP ASPARTATE, DEXTROAMP SULFATE AND AMP SULFATE
Active Ingredient: AMPHETAMINE ASPARTATE; AMPHETAMINE SULFATE; DEXTROAMPHETAMINE SACCHARATE; DEXTROAMPHETAMINE SULFATE
Strength: 12.5MG;12.5MG;12.5MG;12.5MG
Dosage Form/Route: CAPSULE, EXTENDED RELEASE;ORAL
Application: A215997 | Product #004 | TE Code: AB2
Applicant: SUN PHARMACEUTICAL INDUSTRIES INC
Approved: Sep 27, 2023 | RLD: No | RS: No | Type: RX